FAERS Safety Report 7117619-X (Version None)
Quarter: 2010Q4

REPORT INFORMATION
  Report Type: 
  Country: None (occurrence: None)
  Receive Date: 20101122
  Receipt Date: 20101108
  Transmission Date: 20110411
  Serious: Yes (Hospitalization)
  Sender: FDA-Public Use
  Company Number: US-AMGEN-USACT2010004086

PATIENT
  Age: 55 Year
  Sex: Female
  Weight: 76.2 kg

DRUGS (2)
  1. PANITUMUMAB [Suspect]
     Indication: ADENOCARCINOMA PANCREAS
     Dosage: 6 MG/KG, UNK
     Route: 042
     Dates: start: 20100726, end: 20100823
  2. FLUOROURACIL [Suspect]
     Dosage: 225 MG/M2, QD
     Dates: start: 20100726

REACTIONS (1)
  - CHOLECYSTITIS ACUTE [None]
